FAERS Safety Report 6868835-3 (Version None)
Quarter: 2010Q3

REPORT INFORMATION
  Report Type: 
  Country: None (occurrence: None)
  Receive Date: 20100722
  Receipt Date: 20080619
  Transmission Date: 20110219
  Serious: No
  Sender: FDA-Public Use
  Company Number: US-PFIZER INC-2008052815

PATIENT
  Sex: Female
  Weight: 69.545 kg

DRUGS (9)
  1. CHANTIX [Suspect]
     Indication: SMOKING CESSATION THERAPY
     Route: 048
     Dates: start: 20080613
  2. VERAPAMIL [Concomitant]
  3. PRAVACHOL [Concomitant]
  4. XANAX [Concomitant]
  5. METFORMIN [Concomitant]
  6. AVALIDE [Concomitant]
  7. ALBUTEROL [Concomitant]
  8. ADVAIR DISKUS 100/50 [Concomitant]
  9. SPIRIVA [Concomitant]

REACTIONS (3)
  - DEPRESSION [None]
  - FATIGUE [None]
  - FEELING ABNORMAL [None]
